FAERS Safety Report 15689218 (Version 1)
Quarter: 2018Q4

REPORT INFORMATION
  Report Type: Spontaneous
  Country: US (occurrence: US)
  Receive Date: 20181205
  Receipt Date: 20181205
  Transmission Date: 20190205
  Serious: Yes (Hospitalization, Other)
  Sender: FDA-Public Use
  Company Number: US-GLAXOSMITHKLINE-US2018GSK216479

PATIENT
  Sex: Male

DRUGS (2)
  1. ADVAIR HFA [Suspect]
     Active Substance: FLUTICASONE PROPIONATE\SALMETEROL XINAFOATE
     Indication: ASTHMA
     Dosage: UNK
     Route: 055
  2. VENTOLIN [Suspect]
     Active Substance: ALBUTEROL SULFATE
     Indication: ASTHMA
     Route: 055

REACTIONS (4)
  - Hospitalisation [Unknown]
  - Insomnia [Unknown]
  - Cough [Unknown]
  - Dyspnoea [Unknown]
